FAERS Safety Report 16536051 (Version 2)
Quarter: 2020Q4

REPORT INFORMATION
  Report Type: Spontaneous
  Country: US (occurrence: US)
  Receive Date: 20190705
  Receipt Date: 20201027
  Transmission Date: 20210113
  Serious: No
  Sender: FDA-Public Use
  Company Number: US-PFIZER INC-2019247166

PATIENT
  Age: 67 Year
  Sex: Female

DRUGS (3)
  1. DICLOFENAC SODIUM/MISOPROSTOL [Suspect]
     Active Substance: DICLOFENAC SODIUM\MISOPROSTOL
     Dosage: UNK
  2. ARTHROTEC [Suspect]
     Active Substance: DICLOFENAC SODIUM\MISOPROSTOL
     Indication: ARTHRITIS
     Dosage: UNK
  3. MISOPROSTOL. [Suspect]
     Active Substance: MISOPROSTOL
     Dosage: UNK

REACTIONS (1)
  - Pain [Not Recovered/Not Resolved]
